FAERS Safety Report 5216256-1 (Version None)
Quarter: 2007Q1

REPORT INFORMATION
  Report Type: 
  Country: None (occurrence: None)
  Receive Date: 20070123
  Receipt Date: 20070108
  Transmission Date: 20070707
  Serious: Yes (Death, Other)
  Sender: FDA-Public Use
  Company Number: US-BOEHRINGER INGELHEIM PHARMACEUTICALS, INC.-2007-BP-01005BP

PATIENT

DRUGS (1)
  1. TIPRANAVIR/RITONAVIR SOLUTION [Suspect]
     Indication: HIV INFECTION

REACTIONS (3)
  - ACTIVATED PARTIAL THROMBOPLASTIN TIME PROLONGED [None]
  - HAEMORRHAGIC DIATHESIS [None]
  - PROTHROMBIN TIME PROLONGED [None]
